FAERS Safety Report 5960964-1 (Version None)
Quarter: 2008Q4

REPORT INFORMATION
  Report Type: 
  Country: None (occurrence: None)
  Receive Date: 20081119
  Receipt Date: 20081103
  Transmission Date: 20090506
  Serious: Yes (Other)
  Sender: FDA-Public Use
  Company Number: 8039353

PATIENT
  Age: 75 Year
  Sex: Female

DRUGS (1)
  1. KEPPRA [Suspect]
     Indication: CEREBROVASCULAR ACCIDENT
     Dosage: 500 MG 2/D
     Dates: start: 20071101

REACTIONS (1)
  - LYMPHOCYTE COUNT DECREASED [None]
